FAERS Safety Report 8179035-1 (Version None)
Quarter: 2012Q1

REPORT INFORMATION
  Report Type: 
  Country: None (occurrence: None)
  Receive Date: 20120302
  Receipt Date: 20120223
  Transmission Date: 20120608
  Serious: Yes (Disabling)
  Sender: FDA-Public Use
  Company Number: CH-ROCHE-1043017

PATIENT
  Age: 59 Year
  Sex: Female
  Weight: 56 kg

DRUGS (3)
  1. BONIVA [Suspect]
     Indication: OSTEOPOROTIC FRACTURE
     Route: 048
     Dates: start: 20050401, end: 20090401
  2. CALCIMAGON-D3 [Concomitant]
     Indication: OSTEOPOROTIC FRACTURE
     Route: 048
     Dates: start: 20050101
  3. FOSAMAX [Suspect]
     Indication: OSTEOPOROTIC FRACTURE
     Route: 048
     Dates: start: 20050401, end: 20090401

REACTIONS (3)
  - OSTEONECROSIS [None]
  - PATHOLOGICAL FRACTURE [None]
  - JOINT EFFUSION [None]
